FAERS Safety Report 6417254-2 (Version None)
Quarter: 2009Q4

REPORT INFORMATION
  Report Type: 
  Country: None (occurrence: None)
  Receive Date: 20091027
  Receipt Date: 20091027
  Transmission Date: 20100525
  Serious: Yes (Hospitalization)
  Sender: FDA-Public Use
  Company Number: None

PATIENT
  Age: 62 Year
  Sex: Male
  Weight: 107 kg

DRUGS (5)
  1. NAFCILLIN [Suspect]
     Indication: STAPHYLOCOCCAL BACTERAEMIA
     Dosage: 2 G IV Q 4H
     Dates: start: 20090818, end: 20090828
  2. EZETIMIBE [Concomitant]
  3. SIMVASTATIN [Concomitant]
  4. METOPROLOL SUCCINATE [Concomitant]
  5. ACYCLOVIR [Concomitant]

REACTIONS (6)
  - BLOOD PRESSURE INCREASED [None]
  - HAEMODIALYSIS [None]
  - HYPOXIA [None]
  - RASH [None]
  - RENAL FAILURE ACUTE [None]
  - TUBULOINTERSTITIAL NEPHRITIS [None]
